FAERS Safety Report 9335104 (Version 2)
Quarter: 2013Q3

REPORT INFORMATION
  Report Type: Spontaneous
  Country: US (occurrence: US)
  Receive Date: 20130606
  Receipt Date: 20130820
  Transmission Date: 20140515
  Serious: Yes (Other)
  Sender: FDA-Public Use
  Company Number: US-GLAXOSMITHKLINE-A1025217A

PATIENT
  Age: 10 Year
  Sex: Female
  Weight: 39 kg

DRUGS (5)
  1. LAMICTAL [Suspect]
     Indication: PRODUCT USED FOR UNKNOWN INDICATION
     Route: 065
     Dates: end: 2013
  2. UNSPECIFIED MEDICATIONS [Suspect]
     Indication: PRODUCT USED FOR UNKNOWN INDICATION
     Route: 065
  3. OTHER MEDICATIONS [Concomitant]
  4. KEPPRA [Concomitant]
  5. DILANTIN [Concomitant]

REACTIONS (4)
  - Stevens-Johnson syndrome [Recovered/Resolved]
  - Drug prescribing error [Unknown]
  - Hepatic enzyme increased [Unknown]
  - Skin lesion [Unknown]
